FAERS Safety Report 7642428-2 (Version None)
Quarter: 2011Q3

REPORT INFORMATION
  Report Type: 
  Country: None (occurrence: None)
  Receive Date: 20110728
  Receipt Date: 20101207
  Transmission Date: 20111222
  Serious: No
  Sender: FDA-Public Use
  Company Number: US-MYLANLABS-2010S1022596

PATIENT
  Age: 71 Year
  Sex: Female

DRUGS (1)
  1. LEVOTHYROXINE SODIUM [Suspect]

REACTIONS (4)
  - ALOPECIA [None]
  - COUGH [None]
  - DRY SKIN [None]
  - BRONCHITIS [None]
